FAERS Safety Report 21849395 (Version 2)
Quarter: 2024Q3

REPORT INFORMATION
  Report Type: Spontaneous
  Country: BG (occurrence: BG)
  Receive Date: 20230111
  Receipt Date: 20240718
  Transmission Date: 20241016
  Serious: Yes (Death, Other)
  Sender: ABBVIE
  Company Number: BG-ASTELLAS-2023US000632

PATIENT
  Age: 30 Year
  Sex: Female

DRUGS (4)
  1. VENETOCLAX [Suspect]
     Active Substance: VENETOCLAX
     Indication: Product used for unknown indication
     Route: 048
  2. GILTERITINIB [Suspect]
     Active Substance: GILTERITINIB
     Indication: Product used for unknown indication
     Dosage: 120 MG, ONCE DAILY (MAINTENANCE THERAPY)
     Route: 065
  3. GILTERITINIB [Suspect]
     Active Substance: GILTERITINIB
     Indication: Product used for unknown indication
     Dosage: 120 MG, ONCE DAILY (FOR 4 CYCLES)
     Route: 065
  4. AZACITIDINE [Suspect]
     Active Substance: AZACITIDINE
     Indication: Product used for unknown indication
     Dosage: 100 MG/M2, UNKNOWN FREQ. (5 DAYS)
     Route: 065

REACTIONS (5)
  - Pneumonia cytomegaloviral [Fatal]
  - Product use issue [Unknown]
  - Off label use [Unknown]
  - Septic shock [Fatal]
  - Acute myeloid leukaemia recurrent [Unknown]
